FAERS Safety Report 7337182-8 (Version None)
Quarter: 2011Q1

REPORT INFORMATION
  Report Type: 
  Country: None (occurrence: None)
  Receive Date: 20110308
  Receipt Date: 20110303
  Transmission Date: 20110831
  Serious: No
  Sender: FDA-Public Use
  Company Number: US-PFIZER INC-2011047509

PATIENT
  Sex: Male
  Weight: 68.027 kg

DRUGS (4)
  1. TOPROL-XL [Concomitant]
     Indication: HEART RATE INCREASED
     Dosage: 12 MG, DAILY
  2. CRESTOR [Concomitant]
     Indication: BLOOD CHOLESTEROL INCREASED
     Dosage: 5 MG, UNK
  3. ACETYLSALICYLIC ACID [Concomitant]
     Indication: HEART RATE INCREASED
     Dosage: UNK, DAILY
  4. VIAGRA [Suspect]
     Indication: ERECTILE DYSFUNCTION
     Dosage: UNK
     Route: 048
     Dates: start: 20100101

REACTIONS (2)
  - DRUG EFFECT DECREASED [None]
  - MALAISE [None]
